FAERS Safety Report 5620775-3 (Version None)
Quarter: 2008Q1

REPORT INFORMATION
  Report Type: 
  Country: None (occurrence: None)
  Receive Date: 20080208
  Receipt Date: 20080128
  Transmission Date: 20080703
  Serious: Yes (Other)
  Sender: FDA-Public Use
  Company Number: US-PFIZER INC-2008008492

PATIENT
  Sex: Male
  Weight: 94.545 kg

DRUGS (7)
  1. NEURONTIN [Suspect]
     Route: 048
  2. ALL OTHER THERAPEUTIC PRODUCTS [Suspect]
     Indication: ATTENTION DEFICIT/HYPERACTIVITY DISORDER
     Dates: start: 20071128, end: 20071201
  3. ADDERALL 10 [Suspect]
     Indication: ATTENTION DEFICIT/HYPERACTIVITY DISORDER
  4. SEROQUEL [Concomitant]
  5. LAMICTAL [Concomitant]
  6. LOPRESSOR [Concomitant]
  7. KLONOPIN [Concomitant]

REACTIONS (6)
  - ATTENTION DEFICIT/HYPERACTIVITY DISORDER [None]
  - DRUG INEFFECTIVE [None]
  - INTENTIONAL DRUG MISUSE [None]
  - NERVOUSNESS [None]
  - SOMNOLENCE [None]
  - SWELLING FACE [None]
